FAERS Safety Report 16675836 (Version 1)
Quarter: 2019Q3

REPORT INFORMATION
  Report Type: Spontaneous
  Country: US (occurrence: US)
  Receive Date: 20190807
  Receipt Date: 20190807
  Transmission Date: 20191004
  Serious: No
  Sender: FDA-Public Use
  Company Number: US-009507513-1908USA001951

PATIENT
  Age: 63 Year
  Sex: Male

DRUGS (2)
  1. MONTELUKAST [Concomitant]
     Active Substance: MONTELUKAST SODIUM
     Indication: ASTHMA
     Dosage: UNK
  2. PROVENTIL [Suspect]
     Active Substance: ALBUTEROL
     Indication: ASTHMA
     Dosage: PRESCRIBED DOSAGE: AS NEEDED UP TO TWO PUFFS AT A TIME
     Dates: start: 20190726

REACTIONS (4)
  - Dyspnoea [Not Recovered/Not Resolved]
  - Poor quality product administered [Unknown]
  - Incorrect dose administered by product [Unknown]
  - Product quality issue [Not Recovered/Not Resolved]

NARRATIVE: CASE EVENT DATE: 2019
